FAERS Safety Report 4982698-2 (Version None)
Quarter: 2006Q2

REPORT INFORMATION
  Report Type: 
  Country: None (occurrence: None)
  Receive Date: 20060425
  Receipt Date: 20051004
  Transmission Date: 20061013
  Serious: Yes (Other)
  Sender: FDA-Public Use
  Company Number: US-MERCK-0510USA03982

PATIENT
  Age: 69 Year
  Sex: Female
  Weight: 90 kg

DRUGS (24)
  1. VIOXX [Suspect]
     Indication: BACK PAIN
     Route: 048
     Dates: start: 19990608, end: 20040719
  2. ACCUPRIL [Concomitant]
     Route: 065
     Dates: start: 20030601
  3. GLIPIZIDE [Concomitant]
     Route: 065
     Dates: start: 20031201
  4. GLUCOTROL [Concomitant]
     Route: 065
     Dates: start: 20020301
  5. LIPITOR [Concomitant]
     Route: 065
     Dates: start: 20040201, end: 20040801
  6. METFORMIN [Concomitant]
     Route: 065
     Dates: start: 20021101
  7. ASPIRIN [Concomitant]
     Route: 065
     Dates: start: 20030819
  8. MOBIC [Concomitant]
     Route: 065
     Dates: start: 20000919
  9. TYLENOL (CAPLET) [Concomitant]
     Route: 065
     Dates: start: 19990512
  10. EXTRA STRENGTH TYLENOL [Concomitant]
     Route: 065
     Dates: start: 19990608
  11. ULTRACET [Concomitant]
     Route: 065
     Dates: start: 20020218
  12. [THERAPY UNSPECIFIED] [Concomitant]
     Route: 065
     Dates: start: 20030627, end: 20041201
  13. CELEBREX [Concomitant]
     Route: 065
  14. VIOXX [Suspect]
     Indication: OSTEOARTHRITIS
     Route: 048
     Dates: start: 19990608, end: 20040719
  15. VIOXX [Suspect]
     Route: 048
     Dates: start: 19990608, end: 20040719
  16. VIOXX [Suspect]
     Route: 048
     Dates: start: 19990608, end: 20040719
  17. VIOXX [Suspect]
     Route: 048
     Dates: start: 19990608, end: 20040719
  18. VIOXX [Suspect]
     Route: 048
     Dates: start: 19990608, end: 20040719
  19. VIOXX [Suspect]
     Route: 048
     Dates: start: 19990608, end: 20040719
  20. VIOXX [Suspect]
     Route: 048
     Dates: start: 19990608, end: 20040719
  21. VIOXX [Suspect]
     Route: 048
     Dates: start: 19990608, end: 20040719
  22. VIOXX [Suspect]
     Route: 048
     Dates: start: 19990608, end: 20040719
  23. VIOXX [Suspect]
     Route: 048
     Dates: start: 19990608, end: 20040719
  24. VIOXX [Suspect]
     Route: 048
     Dates: start: 19990608, end: 20040719

REACTIONS (6)
  - BACTERIAL INFECTION [None]
  - CEREBROVASCULAR ACCIDENT [None]
  - DIABETIC NEUROPATHY [None]
  - INFECTION [None]
  - PRESCRIBED OVERDOSE [None]
  - TRANSIENT ISCHAEMIC ATTACK [None]
